FAERS Safety Report 13495558 (Version 1)
Quarter: 2017Q2

REPORT INFORMATION
  Report Type: Spontaneous
  Country: GB (occurrence: GB)
  Receive Date: 20170428
  Receipt Date: 20170428
  Transmission Date: 20170830
  Serious: Yes (Hospitalization, Congenital Anomaly)
  Sender: FDA-Public Use
  Company Number: GB-FERRINGPH-2017FE01872

PATIENT

DRUGS (1)
  1. PROPESS [Suspect]
     Active Substance: DINOPROSTONE
     Indication: INDUCED LABOUR
     Dosage: UNK
     Route: 064
     Dates: start: 20170305

REACTIONS (3)
  - Talipes [Unknown]
  - Neonatal respiratory distress syndrome [Recovering/Resolving]
  - Jaundice neonatal [Unknown]
